FAERS Safety Report 25036136 (Version 1)
Quarter: 2025Q1

REPORT INFORMATION
  Report Type: Spontaneous
  Country: US (occurrence: US)
  Receive Date: 20250304
  Receipt Date: 20250304
  Transmission Date: 20250409
  Serious: No
  Sender: CHIESI
  Company Number: US-CHIESI-2025CHF00651

PATIENT
  Sex: Female
  Weight: 54.5 kg

DRUGS (1)
  1. ELFABRIO [Suspect]
     Active Substance: PEGUNIGALSIDASE ALFA-IWXJ
     Indication: Fabry^s disease
     Dosage: UNK, Q.O.WK.
     Route: 042

REACTIONS (3)
  - Left ventricular hypertrophy [Unknown]
  - Condition aggravated [Unknown]
  - Off label use [Unknown]
